FAERS Safety Report 8857170 (Version 2)
Quarter: 2012Q4

REPORT INFORMATION
  Report Type: 
  Country: FR (occurrence: FR)
  Receive Date: 20121024
  Receipt Date: 20121228
  Transmission Date: 20130627
  Serious: Yes (Other)
  Sender: FDA-Public Use
  Company Number: FR-PFIZER INC-2012264803

PATIENT
  Age: 50 Year
  Sex: Male

DRUGS (4)
  1. TORISEL [Suspect]
     Indication: GLIOBLASTOMA
     Dosage: 25 mg, weekly
     Route: 042
     Dates: start: 20120726
  2. SOLUPRED [Concomitant]
     Indication: BRAIN OEDEMA
     Dosage: 60 mg, 1x/day
     Route: 048
     Dates: start: 20120705
  3. KEPPRA [Concomitant]
     Indication: EPILEPSY
     Dosage: 1500 mg, 2x/day
     Route: 048
     Dates: start: 20120704
  4. NEURONTIN [Concomitant]
     Indication: EPILEPSY
     Dosage: 800 mg, 2x/day
     Route: 048
     Dates: start: 20120704

REACTIONS (1)
  - Hyperthyroidism [Recovering/Resolving]
